FAERS Safety Report 11010318 (Version 1)
Quarter: 2015Q2

REPORT INFORMATION
  Report Type: Report from Study
  Country: CO (occurrence: CO)
  Receive Date: 20150410
  Receipt Date: 20150410
  Transmission Date: 20150821
  Serious: Yes (Other)
  Sender: FDA-Public Use
  Company Number: CO-BAYER-2014-174724

PATIENT
  Age: 40 Year
  Sex: Female

DRUGS (3)
  1. BETAFERON [Suspect]
     Active Substance: INTERFERON BETA-1B
     Indication: MULTIPLE SCLEROSIS
     Dosage: 250 ?G, QOD
     Route: 058
     Dates: start: 20081003
  2. METOPROLOL [Concomitant]
     Active Substance: METOPROLOL
     Indication: ARRHYTHMIA
     Dosage: 50 MG, UNK
     Route: 048
  3. OMEPRAZOLE. [Concomitant]
     Active Substance: OMEPRAZOLE
     Indication: ARRHYTHMIA
     Dosage: 20 MG, UNK
     Route: 048

REACTIONS (3)
  - Mouth haemorrhage [Not Recovered/Not Resolved]
  - Asphyxia [Not Recovered/Not Resolved]
  - Breathing-related sleep disorder [None]

NARRATIVE: CASE EVENT DATE: 20141110
